FAERS Safety Report 9224788 (Version 1)
Quarter: 2013Q2

REPORT INFORMATION
  Report Type: Spontaneous
  Country: US (occurrence: US)
  Receive Date: 20130411
  Receipt Date: 20130411
  Transmission Date: 20140414
  Serious: Yes (Hospitalization, Other)
  Sender: FDA-Public Use
  Company Number: US-ASTELLAS-2013US003741

PATIENT
  Age: 63 Year
  Sex: Female
  Weight: 98 kg

DRUGS (3)
  1. PROGRAF [Suspect]
     Indication: RENAL TRANSPLANT
     Dosage: 1.5 MG, UID/QD
     Route: 048
     Dates: start: 20081121
  2. MYFORTIC [Concomitant]
     Indication: PRODUCT USED FOR UNKNOWN INDICATION
     Dosage: UNK
     Route: 065
  3. PREDNISONE [Concomitant]
     Indication: PRODUCT USED FOR UNKNOWN INDICATION
     Dosage: UNK
     Route: 065

REACTIONS (7)
  - Surgery [Unknown]
  - Muscular weakness [Unknown]
  - Functional gastrointestinal disorder [Unknown]
  - Cerebrovascular accident [Unknown]
  - Blindness [Unknown]
  - Bladder disorder [Unknown]
  - Cerebrovascular accident [Unknown]
